FAERS Safety Report 16157446 (Version 2)
Quarter: 2019Q2

REPORT INFORMATION
  Report Type: Spontaneous
  Country: US (occurrence: US)
  Receive Date: 20190404
  Receipt Date: 20190611
  Transmission Date: 20190711
  Serious: Yes (Other)
  Sender: FDA-Public Use
  Company Number: US-PFIZER INC-2019137603

PATIENT
  Age: 75 Year
  Sex: Female
  Weight: 79.83 kg

DRUGS (2)
  1. LYRICA [Suspect]
     Active Substance: PREGABALIN
     Dosage: 50 MG, 1X/DAY (SPLITTING IT IN HALF)
     Route: 048
     Dates: start: 20150817
  2. LYRICA [Suspect]
     Active Substance: PREGABALIN
     Indication: NEURALGIA
     Dosage: 50 MG, UNK

REACTIONS (6)
  - Intentional product misuse [Unknown]
  - Malaise [Unknown]
  - Pneumonia [Unknown]
  - Product prescribing error [Unknown]
  - Inflammation [Unknown]
  - Expired product administered [Unknown]
